FAERS Safety Report 14815120 (Version 2)
Quarter: 2018Q2

REPORT INFORMATION
  Report Type: Spontaneous
  Country: US (occurrence: US)
  Receive Date: 20180426
  Receipt Date: 20180511
  Transmission Date: 20180711
  Serious: Yes (Death, Other)
  Sender: FDA-Public Use
  Company Number: US-TEVA-2018-US-884925

PATIENT
  Sex: Male

DRUGS (1)
  1. FLUOROURACIL. [Suspect]
     Active Substance: FLUOROURACIL
     Indication: HORMONE-REFRACTORY PROSTATE CANCER
     Route: 041

REACTIONS (2)
  - Intestinal haemorrhage [Fatal]
  - Drug resistance [Unknown]
